FAERS Safety Report 8149019-8 (Version None)
Quarter: 2012Q1

REPORT INFORMATION
  Report Type: 
  Country: None (occurrence: None)
  Receive Date: 20120218
  Receipt Date: 20110812
  Transmission Date: 20120608
  Serious: No
  Sender: FDA-Public Use
  Company Number: US-ALLERGAN-1110890US

PATIENT
  Age: 67 Year
  Sex: Female

DRUGS (1)
  1. BOTOX COSMETIC [Suspect]
     Indication: SKIN WRINKLING
     Dosage: 50 UNITS, SINGLE
     Route: 030
     Dates: start: 20110809, end: 20110809

REACTIONS (6)
  - HYPERSENSITIVITY [None]
  - HYPOAESTHESIA [None]
  - SWELLING FACE [None]
  - FATIGUE [None]
  - ERYTHEMA [None]
  - FEELING HOT [None]
